FAERS Safety Report 24568867 (Version 1)
Quarter: 2024Q4

REPORT INFORMATION
  Report Type: Spontaneous
  Country: US (occurrence: US)
  Receive Date: 20241031
  Receipt Date: 20241031
  Transmission Date: 20250115
  Serious: Yes (Other)
  Sender: REGENERON
  Company Number: US-REGENERON PHARMACEUTICALS, INC 2024-110078

PATIENT
  Age: 65 Year
  Sex: Male

DRUGS (1)
  1. LIBTAYO [Suspect]
     Active Substance: CEMIPLIMAB-RWLC
     Indication: Skin cancer

REACTIONS (4)
  - Pneumonitis [Unknown]
  - Hypersensitivity [Unknown]
  - Lymphadenopathy [Unknown]
  - Off label use [Unknown]
